FAERS Safety Report 4867414-7 (Version None)
Quarter: 2005Q4

REPORT INFORMATION
  Report Type: 
  Country: None (occurrence: None)
  Receive Date: 20051222
  Receipt Date: 20051210
  Transmission Date: 20060501
  Serious: Yes (Other)
  Sender: FDA-Public Use
  Company Number: 2005149739

PATIENT
  Sex: Female
  Weight: 87.5442 kg

DRUGS (8)
  1. DIFLUCAN [Suspect]
     Indication: CANDIDIASIS
     Dosage: SEE IMAGE
     Route: 048
     Dates: start: 20051022, end: 20051027
  2. DIFLUCAN [Suspect]
     Indication: CANDIDIASIS
     Dosage: SEE IMAGE
     Route: 048
     Dates: start: 20051021
  3. DOXYCYCLINE [Suspect]
     Indication: ILL-DEFINED DISORDER
  4. MEDROL [Suspect]
     Indication: ILL-DEFINED DISORDER
  5. REMICADE [Suspect]
     Indication: RHEUMATOID ARTHRITIS
  6. ZOLOFT [Concomitant]
  7. ORTHO EVRA [Concomitant]
  8. CYMBALTA [Concomitant]

REACTIONS (11)
  - BRONCHITIS [None]
  - DERMATITIS EXFOLIATIVE [None]
  - INSOMNIA [None]
  - ORAL CANDIDIASIS [None]
  - RASH GENERALISED [None]
  - SKIN ULCER [None]
  - SKIN ULCER HAEMORRHAGE [None]
  - STOMATITIS [None]
  - SWOLLEN TONGUE [None]
  - VAGINAL CANDIDIASIS [None]
  - WOUND SECRETION [None]
